FAERS Safety Report 8618190-3 (Version None)
Quarter: 2012Q3

REPORT INFORMATION
  Report Type: 
  Country: None (occurrence: None)
  Receive Date: 20120824
  Receipt Date: 20120227
  Transmission Date: 20120928
  Serious: No
  Sender: FDA-Public Use
  Company Number: US-ASTRAZENECA-2011SE42099

PATIENT
  Age: 56 Year
  Sex: Female

DRUGS (17)
  1. SPIRIVA [Concomitant]
  2. LEVOTHYROXINE SODIUM [Concomitant]
  3. OXYCONT [Concomitant]
  4. ZYRTEC [Concomitant]
  5. VISTARIL [Concomitant]
  6. REGLAN [Suspect]
     Route: 065
  7. CLARITIN [Concomitant]
  8. SYMBICORT [Suspect]
     Indication: CHRONIC OBSTRUCTIVE PULMONARY DISEASE
     Dosage: 320 TWO TIMES A DAY
     Route: 055
  9. VIMOVO [Suspect]
     Indication: ARTHRITIS
     Dosage: 500 MG / 20 MG TWO TIMES A DAY
     Route: 048
     Dates: start: 20110701, end: 20110801
  10. NEXIUM [Suspect]
     Dosage: TWO CAPSULES
     Route: 048
  11. LISINOPRIL [Concomitant]
  12. NEXIUM [Suspect]
     Indication: GASTROOESOPHAGEAL REFLUX DISEASE
     Route: 048
     Dates: start: 20000101
  13. NEXIUM [Suspect]
     Route: 048
  14. CLONIDINE [Concomitant]
  15. XANAX [Concomitant]
  16. CELEXA [Concomitant]
  17. LOVASTATIN [Concomitant]

REACTIONS (6)
  - CHRONIC OBSTRUCTIVE PULMONARY DISEASE [None]
  - GASTROOESOPHAGEAL REFLUX DISEASE [None]
  - INAPPROPRIATE SCHEDULE OF DRUG ADMINISTRATION [None]
  - MALAISE [None]
  - CHEST DISCOMFORT [None]
  - THROAT IRRITATION [None]
